FAERS Safety Report 25727156 (Version 1)
Quarter: 2025Q3

REPORT INFORMATION
  Report Type: Spontaneous
  Country: US (occurrence: None)
  Receive Date: 20250825
  Receipt Date: 20250825
  Transmission Date: 20251020
  Serious: Yes (Other)
  Sender: FDA-CTU
  Company Number: None

PATIENT
  Age: 81 Year
  Sex: Female

DRUGS (1)
  1. EMGALITY [Suspect]
     Active Substance: GALCANEZUMAB-GNLM

REACTIONS (5)
  - Musculoskeletal stiffness [None]
  - Eye movement disorder [None]
  - Seizure like phenomena [None]
  - Nausea [None]
  - Retching [None]

NARRATIVE: CASE EVENT DATE: 20250821
